FAERS Safety Report 4774269-8 (Version None)
Quarter: 2005Q3

REPORT INFORMATION
  Report Type: 
  Country: None (occurrence: None)
  Receive Date: 20050914
  Receipt Date: 20050729
  Transmission Date: 20060218
  Serious: Yes (Other)
  Sender: FDA-Public Use
  Company Number: 412439

PATIENT
  Age: 82 Year
  Sex: Female
  Weight: 45.8133 kg

DRUGS (5)
  1. BONIVA [Suspect]
     Indication: OSTEOPOROSIS
     Dosage: ORAL
     Route: 048
     Dates: start: 20050721
  2. SUPPLEMENTS(SUPPLEMENTS) [Concomitant]
  3. 1 CONCOMITANT DRUG (GENERIC UNKNOWN) [Concomitant]
  4. LEVOTHYROXINE CONTINUING (LEVOTHYROXINE) [Concomitant]
  5. ESTRACE [Suspect]

REACTIONS (4)
  - ABDOMINAL PAIN UPPER [None]
  - DIARRHOEA [None]
  - GASTROENTERITIS VIRAL [None]
  - PYREXIA [None]
